FAERS Safety Report 10946542 (Version 1)
Quarter: 2015Q1

REPORT INFORMATION
  Report Type: Spontaneous
  Country: US (occurrence: US)
  Receive Date: 20150323
  Receipt Date: 20150323
  Transmission Date: 20150721
  Serious: No
  Sender: FDA-Public Use
  Company Number: US-BAYER-2015-042287

PATIENT
  Sex: Female

DRUGS (1)
  1. FINACEA [Suspect]
     Active Substance: AZELAIC ACID
     Dosage: UNK

REACTIONS (2)
  - Neck pain [None]
  - Headache [None]
